FAERS Safety Report 17233404 (Version 1)
Quarter: 2020Q1

REPORT INFORMATION
  Report Type: Spontaneous
  Country: DE (occurrence: DE)
  Receive Date: 20200104
  Receipt Date: 20200104
  Transmission Date: 20200409
  Serious: Yes (Other)
  Sender: FDA-Public Use
  Company Number: DE-TEVA-2019-DE-1161143

PATIENT
  Age: 39 Year
  Sex: Female
  Weight: 75 kg

DRUGS (1)
  1. CIPROFLOXACIN. [Suspect]
     Active Substance: CIPROFLOXACIN
     Indication: URINARY TRACT INFECTION
     Dosage: 500 MILLIGRAM DAILY; 250MG 1-0-1-0
     Route: 048
     Dates: start: 20190913, end: 20190916

REACTIONS (1)
  - Ovarian cyst ruptured [Recovering/Resolving]

NARRATIVE: CASE EVENT DATE: 20190916
